FAERS Safety Report 6579682-4 (Version None)
Quarter: 2010Q1

REPORT INFORMATION
  Report Type: 
  Country: None (occurrence: None)
  Receive Date: 20100212
  Receipt Date: 20100208
  Transmission Date: 20100710
  Serious: Yes (Death, Hospitalization)
  Sender: FDA-Public Use
  Company Number: AR-ROCHE-675717

PATIENT
  Age: 47 Year
  Sex: Female

DRUGS (4)
  1. AVASTIN [Suspect]
     Indication: BREAST CANCER
     Route: 042
     Dates: start: 20091201, end: 20091201
  2. PACLITAXEL [Concomitant]
     Indication: BREAST CANCER
  3. ADRIAMYCIN PFS [Concomitant]
     Dosage: REPORTED DRUG: ADRIAMICINE
  4. ANASTROZOLE [Concomitant]

REACTIONS (4)
  - ASTHENIA [None]
  - DYSPNOEA [None]
  - METABOLIC ACIDOSIS [None]
  - MICROANGIOPATHIC HAEMOLYTIC ANAEMIA [None]
